FAERS Safety Report 13266000 (Version 2)
Quarter: 2021Q4

REPORT INFORMATION
  Report Type: Spontaneous
  Country: US (occurrence: US)
  Receive Date: 20170223
  Receipt Date: 20211213
  Transmission Date: 20220303
  Serious: Yes (Death, Other)
  Sender: FDA-Public Use
  Company Number: US-LANTHEUS-LMI-2016-00591

PATIENT
  Age: 71 Year
  Sex: Male
  Weight: 97 kg

DRUGS (11)
  1. DEFINITY [Suspect]
     Active Substance: PERFLUTREN
     Indication: Echocardiogram
     Dosage: 1.5 ML, UNK
     Route: 042
     Dates: start: 20160815, end: 20160815
  2. HEPARIN [Concomitant]
     Active Substance: HEPARIN SODIUM
     Indication: Product used for unknown indication
     Dosage: UNK
     Route: 042
  3. LIPITOR [Concomitant]
     Active Substance: ATORVASTATIN CALCIUM
     Indication: Product used for unknown indication
     Dosage: UNK
  4. COUMADIN                           /00014802/ [Concomitant]
     Indication: Product used for unknown indication
     Dosage: UNK
  5. ASPIRIN                            /00002701/ [Concomitant]
     Indication: Product used for unknown indication
     Dosage: UNK
  6. CARVEDILOL [Concomitant]
     Active Substance: CARVEDILOL
     Indication: Product used for unknown indication
     Dosage: UNK
  7. PEPCID                             /00706001/ [Concomitant]
     Indication: Product used for unknown indication
     Dosage: UNK
  8. POTASSIUM [Concomitant]
     Active Substance: POTASSIUM
     Indication: Product used for unknown indication
     Dosage: UNK
  9. CIPRO                              /00697201/ [Concomitant]
     Indication: Product used for unknown indication
     Dosage: UNK
  10. MAALOX                             /00082501/ [Concomitant]
     Indication: Product used for unknown indication
     Dosage: UNK
  11. DULCOLAX (BISACODYL) [Concomitant]
     Active Substance: BISACODYL
     Indication: Product used for unknown indication
     Dosage: UNK

REACTIONS (3)
  - Ischaemic stroke [Fatal]
  - Pulseless electrical activity [Unknown]
  - Respiratory distress [Unknown]

NARRATIVE: CASE EVENT DATE: 20160815
